FAERS Safety Report 8818410 (Version 4)
Quarter: 2013Q2

REPORT INFORMATION
  Report Type: Spontaneous
  Country: CA (occurrence: CA)
  Receive Date: 20121001
  Receipt Date: 20130610
  Transmission Date: 20140414
  Serious: Yes (Hospitalization)
  Sender: FDA-Public Use
  Company Number: CA-ROCHE-1137800

PATIENT
  Age: 74 Year
  Sex: Male

DRUGS (23)
  1. XOLAIR [Suspect]
     Indication: ASTHMA
     Route: 058
     Dates: start: 20120320
  2. XOLAIR [Suspect]
     Route: 058
     Dates: start: 20120320
  3. PREDNISONE [Concomitant]
  4. ADVAIR [Concomitant]
  5. COZAAR [Concomitant]
  6. PANTOPRAZOLE [Concomitant]
  7. SIMVASTATIN [Concomitant]
  8. ATROVENT [Concomitant]
  9. VENTOLIN [Concomitant]
  10. INSULIN [Concomitant]
  11. DILTIAZEM [Concomitant]
  12. LASIX [Concomitant]
  13. PRAVASTATIN [Concomitant]
  14. POTASSIUM CHLORIDE [Concomitant]
  15. TAMSULOSIN [Concomitant]
  16. CHOLECALCIFEROL [Concomitant]
  17. COUMADIN [Concomitant]
  18. CELEBREX [Concomitant]
  19. PERCOCET [Concomitant]
  20. COLACE [Concomitant]
  21. SENOKOT [Concomitant]
  22. ZOPLICONE (UNK INGREDIENTS) [Concomitant]
  23. MOXIFLOXACIN [Concomitant]

REACTIONS (3)
  - Bronchopulmonary aspergillosis [Unknown]
  - Pneumonia [Recovered/Resolved with Sequelae]
  - Drug ineffective [Unknown]
